FAERS Safety Report 22248947 (Version 1)
Quarter: 2023Q2

REPORT INFORMATION
  Report Type: Spontaneous
  Country: US (occurrence: US)
  Receive Date: 20230425
  Receipt Date: 20230425
  Transmission Date: 20230722
  Serious: Yes (Other)
  Sender: FDA-Public Use
  Company Number: US-ALKEM LABORATORIES LIMITED-US-ALKEM-2023-01857

PATIENT
  Age: 42 Year
  Sex: Male

DRUGS (2)
  1. FINGOLIMOD [Suspect]
     Active Substance: FINGOLIMOD
     Indication: Relapsing-remitting multiple sclerosis
     Dosage: UNK
     Route: 065
     Dates: start: 2017, end: 2020
  2. FINGOLIMOD [Suspect]
     Active Substance: FINGOLIMOD
     Dosage: UNK (RESTARTED)
     Route: 065
     Dates: start: 202110

REACTIONS (3)
  - Cutaneous T-cell lymphoma [Recovering/Resolving]
  - Disease progression [Recovering/Resolving]
  - Multiple sclerosis [Unknown]
